FAERS Safety Report 7369966-4 (Version None)
Quarter: 2011Q1

REPORT INFORMATION
  Report Type: 
  Country: None (occurrence: None)
  Receive Date: 20110323
  Receipt Date: 20110314
  Transmission Date: 20110831
  Serious: Yes (Hospitalization)
  Sender: FDA-Public Use
  Company Number: US-ASTRAZENECA-2011SE14070

PATIENT
  Sex: Female

DRUGS (2)
  1. ARICEPT [Concomitant]
  2. NEXIUM [Suspect]
     Route: 048
     Dates: start: 20060101

REACTIONS (3)
  - ABASIA [None]
  - PNEUMONIA [None]
  - NEUROLOGICAL DECOMPENSATION [None]
